FAERS Safety Report 10036752 (Version 1)
Quarter: 2014Q1

REPORT INFORMATION
  Report Type: Spontaneous
  Country: US (occurrence: US)
  Receive Date: 20140326
  Receipt Date: 20140326
  Transmission Date: 20141002
  Serious: No
  Sender: FDA-Public Use
  Company Number: US-BIOGENIDEC-2014BI024724

PATIENT
  Age: 40 Year
  Sex: Female

DRUGS (1)
  1. TECFIDERA [Suspect]
     Indication: RELAPSING-REMITTING MULTIPLE SCLEROSIS
     Dates: start: 20140206, end: 20140219

REACTIONS (5)
  - Platelet count increased [Unknown]
  - Pain [Not Recovered/Not Resolved]
  - Gastric disorder [Recovered/Resolved]
  - Eye disorder [Not Recovered/Not Resolved]
  - Anxiety [Recovered/Resolved]
